FAERS Safety Report 12847613 (Version 1)
Quarter: 2016Q4

REPORT INFORMATION
  Report Type: Spontaneous
  Country: US (occurrence: US)
  Receive Date: 20161013
  Receipt Date: 20161013
  Transmission Date: 20170207
  Serious: No
  Sender: FDA-Public Use
  Company Number: None

PATIENT
  Age: 68 Year
  Sex: Male

DRUGS (1)
  1. NINLARO [Suspect]
     Active Substance: IXAZOMIB
     Dosage: 3MG ONCE A WEEK X3 BY MOUTH
     Route: 048
     Dates: start: 20160814

REACTIONS (3)
  - Platelet count decreased [None]
  - Diarrhoea [None]
  - Rash [None]
